FAERS Safety Report 4912998-3 (Version None)
Quarter: 2006Q1

REPORT INFORMATION
  Report Type: 
  Country: None (occurrence: None)
  Receive Date: 20060210
  Receipt Date: 20060125
  Transmission Date: 20060701
  Serious: Yes (Hospitalization)
  Sender: FDA-Public Use
  Company Number: DSA_27690_2006

PATIENT
  Age: 62 Year
  Sex: Male
  Weight: 75.0249 kg

DRUGS (9)
  1. CARDIZEM [Suspect]
     Dosage: 100 MG ONCE IV
     Route: 042
     Dates: start: 20051201, end: 20051201
  2. ANGIOMAX [Suspect]
     Dosage: 45 MG ONCE IV
     Route: 042
     Dates: start: 20051201, end: 20051201
  3. ANGIOMAX [Suspect]
     Dosage: 488 MG IV
     Route: 042
     Dates: start: 20051201, end: 20051202
  4. ASPIRIN [Concomitant]
  5. AVITA [Concomitant]
  6. CRESTOR [Concomitant]
  7. PLAVIX [Concomitant]
  8. TRICOR [Concomitant]
  9. TOPROL-XL [Concomitant]

REACTIONS (4)
  - BLOOD PRESSURE INCREASED [None]
  - BRADYCARDIA [None]
  - MALAISE [None]
  - WRONG DRUG ADMINISTERED [None]
